FAERS Safety Report 8010529-5 (Version None)
Quarter: 2011Q4

REPORT INFORMATION
  Report Type: 
  Country: None (occurrence: None)
  Receive Date: 20111228
  Receipt Date: 20111221
  Transmission Date: 20120403
  Serious: Yes (Other)
  Sender: FDA-Public Use
  Company Number: PHHY2009JP19744

PATIENT
  Age: 70 Year
  Sex: Male

DRUGS (25)
  1. LEVOTHYROXINE SODIUM [Concomitant]
     Dosage: 75 UG, UNK
     Route: 048
  2. BERIZYM [Concomitant]
     Indication: DYSPEPSIA
     Dosage: 1.5 G, UNK
     Route: 048
  3. EXJADE [Concomitant]
     Indication: IRON OVERLOAD
     Dosage: 1250 MG, UNK
     Route: 048
  4. LEVOTHYROXINE SODIUM [Concomitant]
     Dosage: 75 UG, UNK
     Route: 048
  5. FUROSEMIDE [Concomitant]
     Indication: FLUID RETENTION
     Dosage: 80 MG, UNK
     Route: 048
  6. ALLOPURINOL [Concomitant]
     Dosage: 200 MG, UNK
     Route: 048
  7. SLOW-K [Concomitant]
     Dosage: 2400 MG, UNK
     Route: 048
  8. CYMERIN [Concomitant]
     Dosage: 50 MG, UNK
     Route: 042
     Dates: end: 20090423
  9. CORTRIL [Concomitant]
     Dosage: 20 MG, UNK
     Route: 048
  10. FUROSEMIDE [Concomitant]
     Dosage: 80 MG, UNK
     Route: 048
  11. SLOW-K [Concomitant]
     Dosage: 2400 MG, UNK
     Route: 048
  12. SELBEX [Concomitant]
     Indication: PROPHYLAXIS
     Dosage: 50 MG, UNK
     Route: 048
     Dates: start: 20090414, end: 20090415
  13. HICORT [Concomitant]
     Dosage: 2 MG, UNK
     Route: 042
     Dates: start: 20090416, end: 20090420
  14. FUROSEMIDE [Concomitant]
     Dosage: 60 MG, UNK
     Route: 042
     Dates: start: 20090416, end: 20090420
  15. LAC B [Concomitant]
     Indication: PROPHYLAXIS
     Dosage: 3 G, UNK
     Route: 048
     Dates: start: 20090413, end: 20090414
  16. DESFERAL [Concomitant]
     Dosage: 1000 MG, UNK
     Dates: start: 20090415, end: 20090427
  17. OMEPRAZOLE [Concomitant]
     Indication: PROPHYLAXIS
     Dosage: 10 MG, UNK
     Route: 042
     Dates: start: 20090417, end: 20090420
  18. TASIGNA [Suspect]
     Indication: CHRONIC MYELOID LEUKAEMIA
     Dosage: 800 MG, DAILY
     Route: 048
     Dates: start: 20090402, end: 20090414
  19. BERIZYM [Concomitant]
     Dosage: 1.5 G, UNK
     Route: 048
  20. ALBUMIN (HUMAN) [Concomitant]
     Indication: FLUID RETENTION
     Dosage: 50 ML, UNK
     Route: 042
     Dates: start: 20090418, end: 20090420
  21. EXJADE [Concomitant]
     Dosage: 1250 MG, UNK
     Route: 048
  22. CORTRIL [Concomitant]
     Dosage: 20 MG, UNK
     Route: 048
  23. ALLOPURINOL [Concomitant]
     Dosage: 200 MG, UNK
     Route: 048
  24. RED BLOOD CELLS, CONCENTRATED [Concomitant]
     Indication: CHRONIC MYELOID LEUKAEMIA
     Dosage: 4 IU, UNK
     Route: 042
  25. CYMERIN [Concomitant]
     Indication: CHRONIC MYELOID LEUKAEMIA
     Dosage: 50 MG, UNK
     Route: 042
     Dates: start: 20090420

REACTIONS (6)
  - HEPATIC FUNCTION ABNORMAL [None]
  - CHILLS [None]
  - BLOOD BILIRUBIN INCREASED [None]
  - BLOOD ALKALINE PHOSPHATASE INCREASED [None]
  - SEPSIS [None]
  - PYREXIA [None]
